FAERS Safety Report 5786229-9 (Version None)
Quarter: 2008Q2

REPORT INFORMATION
  Report Type: 
  Country: None (occurrence: None)
  Receive Date: 20080624
  Receipt Date: 20080613
  Transmission Date: 20081010
  Serious: Yes (Hospitalization, Other)
  Sender: FDA-Public Use
  Company Number: JP-SANOFI-SYNTHELABO-A01200806587

PATIENT
  Sex: Female
  Weight: 45 kg

DRUGS (16)
  1. ACYCLOVIR [Concomitant]
     Indication: ULCERATIVE KERATITIS
     Dates: start: 20080512
  2. BETAMETHASONE SODIUM PHOSPHATE [Concomitant]
     Indication: ULCERATIVE KERATITIS
     Dates: start: 20080512
  3. BETAMETHASONE SODIUM PHOSPHATE [Concomitant]
     Dates: start: 20080528, end: 20080530
  4. LEVOFLOXACIN [Concomitant]
     Indication: ULCERATIVE KERATITIS
     Dates: start: 20080512
  5. ATARAX [Concomitant]
     Route: 042
     Dates: start: 20080130, end: 20080528
  6. DEXAMETHASONE SODIUM PHOSPHATE [Concomitant]
     Route: 042
     Dates: start: 20080130, end: 20080528
  7. KYTRIL [Concomitant]
     Route: 042
     Dates: start: 20080130, end: 20080528
  8. KYTRIL [Concomitant]
     Route: 048
     Dates: start: 20080528, end: 20080530
  9. LEUCOVORIN CALCIUM [Suspect]
     Dosage: 200 MG/M2
     Route: 042
     Dates: start: 20080430, end: 20080430
  10. LEUCOVORIN CALCIUM [Suspect]
     Dosage: 250 MG
     Route: 042
     Dates: start: 20080528, end: 20080528
  11. FLUOROURACIL [Suspect]
     Dosage: 400 MG/M2 AS BOLUS THEN 2400 MG/M2 AS CONTINUOUS INFUSION
     Route: 042
     Dates: start: 20080130, end: 20080402
  12. FLUOROURACIL [Suspect]
     Dosage: 2400 MG/M2
     Route: 041
     Dates: start: 20080430, end: 20080430
  13. FLUOROURACIL [Suspect]
     Dosage: 300 MG/M2 IN BOLUS THEN 2300 MG/M2 AS CONTINUOUS INFUSION
     Route: 042
     Dates: start: 20080528, end: 20080528
  14. AZD2171 [Suspect]
     Dosage: UNK
     Route: 048
     Dates: start: 20080528, end: 20080528
  15. ELPLAT [Suspect]
     Indication: RECTAL CANCER
     Route: 042
     Dates: start: 20080528, end: 20080528
  16. RABEPRAZOLE SODIUM [Concomitant]
     Route: 048
     Dates: start: 20080528, end: 20080530

REACTIONS (2)
  - CARDIAC FAILURE [None]
  - NEUTROPENIA [None]
